FAERS Safety Report 9036433 (Version 1)
Quarter: 2013Q1

REPORT INFORMATION
  Report Type: Spontaneous
  Country: US (occurrence: None)
  Receive Date: 20130117
  Receipt Date: 20130117
  Transmission Date: 20140127
  Serious: Yes (Hospitalization)
  Sender: FDA-Public Use
  Company Number: None

PATIENT
  Age: 76 Year
  Sex: Female
  Weight: 80.74 kg

DRUGS (2)
  1. MULTIHANCE [Suspect]
     Indication: DEAFNESS
     Dosage: 18 CC ONCE IV BOLUS
     Route: 040
     Dates: start: 20121130, end: 20121130
  2. MULTIHANCE [Suspect]
     Indication: NUCLEAR MAGNETIC RESONANCE IMAGING BRAIN
     Dosage: 18 CC ONCE IV BOLUS
     Route: 040
     Dates: start: 20121130, end: 20121130

REACTIONS (7)
  - Sneezing [None]
  - Glossodynia [None]
  - Feeling hot [None]
  - Eye swelling [None]
  - Erythema [None]
  - Dysphagia [None]
  - Dyspnoea [None]
